FAERS Safety Report 4615439-9 (Version None)
Quarter: 2005Q1

REPORT INFORMATION
  Report Type: 
  Country: None (occurrence: None)
  Receive Date: 20050317
  Receipt Date: 20050317
  Transmission Date: 20050727
  Serious: Yes (Other)
  Sender: FDA-Public Use
  Company Number: 2005041873

PATIENT
  Age: 61 Year
  Sex: Male

DRUGS (1)
  1. VIAGRA [Suspect]
     Indication: ERECTILE DYSFUNCTION
     Dosage: 50 MG, AS NECESSARY, ORAL
     Route: 048
     Dates: start: 20030101

REACTIONS (5)
  - CATARACT OPERATION [None]
  - EYE HAEMORRHAGE [None]
  - RADICAL PROSTATECTOMY [None]
  - RETINAL TEAR [None]
  - VITREOUS DETACHMENT [None]
